FAERS Safety Report 9813713 (Version 1)
Quarter: 2014Q1

REPORT INFORMATION
  Report Type: Spontaneous
  Country: US (occurrence: US)
  Receive Date: 20140113
  Receipt Date: 20140113
  Transmission Date: 20141002
  Serious: Yes (Hospitalization, Other)
  Sender: FDA-Public Use
  Company Number: US-TEVA-455631USA

PATIENT
  Age: 78 Year
  Sex: Female
  Weight: 74 kg

DRUGS (16)
  1. QVAR [Suspect]
     Indication: ASTHMA
     Route: 055
     Dates: start: 20131218
  2. PLAVIX [Concomitant]
     Indication: ANTICOAGULANT THERAPY
  3. PANTOPRAZOLE [Concomitant]
     Indication: GASTRIC ULCER
  4. PANTOPRAZOLE [Concomitant]
     Indication: GASTROOESOPHAGEAL REFLUX DISEASE
  5. LEVOTHYROXINE [Concomitant]
     Indication: HYPOTHYROIDISM
  6. ASPIRIN (ENTERIC) [Concomitant]
     Dosage: 325 MILLIGRAM DAILY;
  7. LASIX [Concomitant]
     Indication: DIURETIC THERAPY
  8. METOPROLOL [Concomitant]
     Indication: HYPERTENSION
  9. PROVISION [Concomitant]
     Indication: EYE DISORDER
  10. CALCIUM [Concomitant]
     Indication: OSTEOPOROSIS
     Dosage: 600 MILLIGRAM DAILY;
  11. VITAMIN D [Concomitant]
     Indication: OSTEOPOROSIS
     Dosage: 1000 MILLIGRAM DAILY;
  12. LOVASTATIN [Concomitant]
     Indication: BLOOD CHOLESTEROL INCREASED
  13. SPIRIVA [Concomitant]
     Indication: ASTHMA
  14. LORATADINE [Concomitant]
     Indication: ASTHMA
     Dosage: 10 MILLIGRAM DAILY;
  15. SPRAYMIST RESP [Concomitant]
     Indication: ASTHMA
     Route: 055
  16. CODEINE [Concomitant]
     Indication: ARTHRITIS

REACTIONS (9)
  - Pulmonary oedema [Unknown]
  - Blindness unilateral [Unknown]
  - Hospitalisation [Unknown]
  - Dry throat [Unknown]
  - Arthritis [Recovered/Resolved]
  - Asthenia [Unknown]
  - Vision blurred [Unknown]
  - Dyspnoea [Unknown]
  - Aptyalism [Unknown]
